FAERS Safety Report 10072513 (Version 1)
Quarter: 2014Q2

REPORT INFORMATION
  Report Type: Spontaneous
  Country: US (occurrence: US)
  Receive Date: 20140411
  Receipt Date: 20140411
  Transmission Date: 20141212
  Serious: No
  Sender: FDA-Public Use
  Company Number: US-TEVA-474789USA

PATIENT
  Sex: Female
  Weight: 85.35 kg

DRUGS (5)
  1. QNASL [Suspect]
     Indication: HYPERSENSITIVITY
     Route: 055
     Dates: start: 2012
  2. MONTELUKAST [Concomitant]
     Indication: HYPERSENSITIVITY
  3. CARBATROL [Concomitant]
     Indication: CONVULSION
  4. TRIAMTERENE [Concomitant]
     Indication: HYPERTENSION
  5. LEVOTHYROXINE [Concomitant]
     Indication: HYPOTHYROIDISM

REACTIONS (4)
  - Sensation of foreign body [Not Recovered/Not Resolved]
  - Sinus congestion [Not Recovered/Not Resolved]
  - Nasopharyngitis [Not Recovered/Not Resolved]
  - Oropharyngeal pain [Not Recovered/Not Resolved]
